FAERS Safety Report 4534919-8 (Version None)
Quarter: 2004Q4

REPORT INFORMATION
  Report Type: 
  Country: None (occurrence: None)
  Receive Date: 20041222
  Receipt Date: 20040804
  Transmission Date: 20050328
  Serious: No
  Sender: FDA-Public Use
  Company Number: US-BRISTOL-MYERS SQUIBB COMPANY-12661625

PATIENT
  Age: 73 Year
  Sex: Female
  Weight: 73 kg

DRUGS (6)
  1. PRAVACHOL [Suspect]
     Indication: BLOOD CHOLESTEROL INCREASED
     Route: 048
  2. METFORMIN HCL [Concomitant]
  3. RANITIDINE HCL [Concomitant]
  4. LISINOPRIL [Concomitant]
     Dates: start: 20030801
  5. ALBUTEROL SULFATE [Concomitant]
  6. VITAMIN C AND E [Concomitant]

REACTIONS (1)
  - MYALGIA [None]
